FAERS Safety Report 24944011 (Version 1)
Quarter: 2025Q1

REPORT INFORMATION
  Report Type: Spontaneous
  Country: US (occurrence: None)
  Receive Date: 20250204
  Receipt Date: 20250204
  Transmission Date: 20250409
  Serious: Yes (Life-Threatening, Other)
  Sender: FDA-CTU
  Company Number: None

PATIENT
  Age: 75 Year
  Sex: Male
  Weight: 67.13 kg

DRUGS (4)
  1. METHYLENE BLUE [Suspect]
     Active Substance: METHYLENE BLUE
     Indication: Parkinson^s disease
     Dates: start: 20240718, end: 20250109
  2. METHYLENE BLUE [Suspect]
     Active Substance: METHYLENE BLUE
     Indication: Post-acute COVID-19 syndrome
  3. OZONE [Suspect]
     Active Substance: OZONE
     Indication: Parkinson^s disease
     Dates: start: 20240817, end: 20250110
  4. OZONE [Suspect]
     Active Substance: OZONE
     Indication: COVID-19

REACTIONS (3)
  - Cerebrovascular accident [None]
  - Incorrect dose administered [None]
  - Adverse reaction [None]

NARRATIVE: CASE EVENT DATE: 20241219
